FAERS Safety Report 4780638-2 (Version None)
Quarter: 2005Q3

REPORT INFORMATION
  Report Type: 
  Country: None (occurrence: None)
  Receive Date: 20050926
  Receipt Date: 20050908
  Transmission Date: 20060218
  Serious: Yes (Death, Hospitalization)
  Sender: FDA-Public Use
  Company Number: DSA_70705_2005

PATIENT
  Sex: Female

DRUGS (2)
  1. ROXANOL [Suspect]
     Indication: DYSPNOEA
     Dosage: 10 ML ONCE PO
     Route: 048
     Dates: start: 20050101, end: 20050101
  2. ROXANOL [Suspect]
     Indication: DYSPNOEA
     Dosage: DF Q2HR PO
     Route: 048

REACTIONS (4)
  - DRUG DISPENSING ERROR [None]
  - DYSPNOEA [None]
  - INCORRECT DOSE ADMINISTERED [None]
  - OVERDOSE [None]
